FAERS Safety Report 7973541-8 (Version None)
Quarter: 2011Q4

REPORT INFORMATION
  Report Type: 
  Country: None (occurrence: None)
  Receive Date: 20111213
  Receipt Date: 20111206
  Transmission Date: 20120403
  Serious: Yes (Hospitalization)
  Sender: FDA-Public Use
  Company Number: CH-B.I. PHARMACEUTICALS,INC./RIDGEFIELD-2011-AP-00705SI

PATIENT
  Age: 60 Year
  Sex: Male

DRUGS (3)
  1. SPIRONOLACTONE [Suspect]
     Indication: HEPATIC CIRRHOSIS
  2. SPIRONOLACTONE [Suspect]
     Indication: HEPATIC FIBROSIS
     Dosage: 100 MG
     Route: 048
     Dates: start: 20110101, end: 20111020
  3. MICARDIS [Suspect]
     Dosage: 80 MG
     Route: 048
     Dates: end: 20111020

REACTIONS (3)
  - RENAL FAILURE ACUTE [None]
  - HYPERKALAEMIA [None]
  - METABOLIC ACIDOSIS [None]
